FAERS Safety Report 23264764 (Version 1)
Quarter: 2023Q4

REPORT INFORMATION
  Report Type: Spontaneous
  Country: CN (occurrence: CN)
  Receive Date: 20231206
  Receipt Date: 20231206
  Transmission Date: 20240110
  Serious: Yes (Hospitalization)
  Sender: FDA-Public Use
  Company Number: CN-SHANGHAI JUNSHI BIOSCIENCES CO., LTD.-CN2023008745

PATIENT

DRUGS (3)
  1. TORIPALIMAB [Suspect]
     Active Substance: TORIPALIMAB
     Indication: Bladder cancer
     Dosage: 240 MG (D4), INTRAVENOUS INJECTION
     Route: 042
     Dates: start: 20230927, end: 20230927
  2. CARBOPLATIN [Suspect]
     Active Substance: CARBOPLATIN
     Indication: Bladder cancer
     Dosage: 300 MG (D2)
     Route: 042
     Dates: start: 20230925, end: 20230925
  3. DOCETAXEL [Suspect]
     Active Substance: DOCETAXEL\DOCETAXEL ANHYDROUS
     Indication: Bladder cancer
     Dosage: 100 MG (D1)
     Route: 042
     Dates: start: 20230924, end: 20230924

REACTIONS (4)
  - Myelosuppression [Recovering/Resolving]
  - Off label use [Unknown]
  - Incorrect route of product administration [Unknown]
  - Medication error [Unknown]

NARRATIVE: CASE EVENT DATE: 20230927
